FAERS Safety Report 7942132-7 (Version None)
Quarter: 2011Q4

REPORT INFORMATION
  Report Type: 
  Country: None (occurrence: None)
  Receive Date: 20111122
  Receipt Date: 20111115
  Transmission Date: 20120403
  Serious: Yes (Life-Threatening, Hospitalization)
  Sender: FDA-Public Use
  Company Number: AUR-APL-2011-05870

PATIENT
  Age: 58 Year
  Sex: Male

DRUGS (5)
  1. VENLAFAXINE [Suspect]
     Indication: PRODUCT USED FOR UNKNOWN INDICATION
  2. CARVEDILOL [Suspect]
     Indication: PRODUCT USED FOR UNKNOWN INDICATION
  3. METFORMIN HCL [Suspect]
     Indication: PRODUCT USED FOR UNKNOWN INDICATION
  4. INSULIN [Suspect]
     Indication: PRODUCT USED FOR UNKNOWN INDICATION
  5. ATORVASTATIN CALCIUM [Suspect]
     Indication: PRODUCT USED FOR UNKNOWN INDICATION

REACTIONS (10)
  - APNOEA [None]
  - BODY TEMPERATURE DECREASED [None]
  - BRADYCARDIA [None]
  - POISONING [None]
  - CARDIAC ARREST [None]
  - HAEMODIALYSIS [None]
  - HYPOTENSION [None]
  - BLOOD GLUCOSE DECREASED [None]
  - MUSCLE RIGIDITY [None]
  - TRISMUS [None]
